FAERS Safety Report 20650411 (Version 1)
Quarter: 2022Q1

REPORT INFORMATION
  Report Type: Spontaneous
  Country: US (occurrence: US)
  Receive Date: 20220329
  Receipt Date: 20220329
  Transmission Date: 20220424
  Serious: No
  Sender: FDA-Public Use
  Company Number: US-SANOFI-01035329

PATIENT
  Age: 63 Year
  Sex: Female

DRUGS (1)
  1. PLAVIX [Suspect]
     Active Substance: CLOPIDOGREL BISULFATE
     Indication: Cerebrovascular accident
     Dosage: 75 MG
     Route: 065

REACTIONS (2)
  - Blood glucose normal [Unknown]
  - Blood glucose increased [Unknown]
